FAERS Safety Report 8557841-9 (Version None)
Quarter: 2012Q3

REPORT INFORMATION
  Report Type: 
  Country: None (occurrence: None)
  Receive Date: 20120801
  Receipt Date: 20120725
  Transmission Date: 20120928
  Serious: Yes (Hospitalization)
  Sender: FDA-Public Use
  Company Number: US-GLAXOSMITHKLINE-A0986980A

PATIENT
  Sex: Female

DRUGS (2)
  1. NO CONCURRENT MEDICATION [Concomitant]
  2. VENTOLIN [Suspect]
     Indication: ASTHMA
     Route: 055

REACTIONS (3)
  - ASTHMA [None]
  - LUNG INFECTION [None]
  - DRUG INEFFECTIVE [None]
